FAERS Safety Report 8966357 (Version 1)
Quarter: 2012Q4

REPORT INFORMATION
  Report Type: 
  Country: JP (occurrence: JP)
  Receive Date: 20121217
  Receipt Date: 20121217
  Transmission Date: 20130627
  Serious: No
  Sender: FDA-Public Use
  Company Number: JP-ELI_LILLY_AND_COMPANY-JP201202002474

PATIENT
  Age: 58 Year
  Sex: Female

DRUGS (5)
  1. ZYPREXA [Suspect]
     Indication: BIPOLAR DISORDER
     Dosage: 10 mg, UNK
     Route: 048
  2. LITHIUM CARBONATE [Concomitant]
     Indication: BIPOLAR DISORDER
     Dosage: 600 mg, UNK
  3. BROTIZOLAM [Concomitant]
     Indication: BIPOLAR DISORDER
     Dosage: 0.25 mg, UNK
  4. QUETIAPINE FUMARATE [Concomitant]
     Indication: BIPOLAR DISORDER
     Dosage: 50 mg, UNK
  5. SERTRALINE HYDROCHLORIDE [Concomitant]
     Indication: BIPOLAR DISORDER
     Dosage: 75 mg, UNK

REACTIONS (5)
  - Eosinophilia [Unknown]
  - C-reactive protein increased [Unknown]
  - Oedema peripheral [Unknown]
  - Weight increased [Recovered/Resolved]
  - Hepatic function abnormal [Unknown]
